FAERS Safety Report 5741037-X (Version None)
Quarter: 2008Q2

REPORT INFORMATION
  Report Type: 
  Country: None (occurrence: None)
  Receive Date: 20080516
  Receipt Date: 20080506
  Transmission Date: 20081010
  Serious: Yes (Other)
  Sender: FDA-Public Use
  Company Number: US-PFIZER INC-2008039255

PATIENT
  Sex: Female
  Weight: 63.5 kg

DRUGS (7)
  1. CELEBREX [Suspect]
     Indication: RHEUMATOID ARTHRITIS
     Dates: start: 20070101, end: 20080502
  2. CELEBREX [Suspect]
     Indication: OSTEOARTHRITIS
  3. PAMELOR [Concomitant]
     Indication: MIGRAINE
  4. SYNTHROID [Concomitant]
     Indication: THYROID DISORDER
  5. ALL OTHER THERAPEUTIC PRODUCTS [Concomitant]
  6. NEXIUM [Concomitant]
  7. VITAMIN CAP [Concomitant]

REACTIONS (3)
  - ABDOMINAL NEOPLASM [None]
  - INFLAMMATION [None]
  - TUMOUR ULCERATION [None]
